FAERS Safety Report 10382387 (Version 1)
Quarter: 2014Q3

REPORT INFORMATION
  Report Type: Spontaneous
  Country: US (occurrence: US)
  Receive Date: 20140813
  Receipt Date: 20140813
  Transmission Date: 20150326
  Serious: Yes (Hospitalization)
  Sender: FDA-Public Use
  Company Number: US-B.I. PHARMACEUTICALS,INC./RIDGEFIELD-2014-BI-36479BP

PATIENT
  Age: 65 Year
  Sex: Female

DRUGS (58)
  1. PANTOPRAZOLE [Concomitant]
     Active Substance: PANTOPRAZOLE SODIUM
     Route: 065
  2. VALGANCICLOVIR [Concomitant]
     Active Substance: VALGANCICLOVIR
     Route: 065
  3. DIBLOCIN [Concomitant]
     Route: 065
  4. DREISAVIT [Concomitant]
     Route: 065
  5. UNIZINK [Concomitant]
     Active Substance: AVOBENZONE\HOMOSALATE\OCTISALATE
     Route: 065
  6. ULTIA [Concomitant]
     Route: 065
  7. CATAPRES [Suspect]
     Active Substance: CLONIDINE HYDROCHLORIDE
     Indication: HYPERTENSION
     Route: 065
  8. PIPRIL [Concomitant]
     Active Substance: PIPERACILLIN SODIUM
     Route: 065
  9. PROTAPHANE [Concomitant]
     Active Substance: INSULIN HUMAN
     Route: 065
  10. LONITEN [Concomitant]
     Active Substance: MINOXIDIL
     Route: 065
  11. METAMIZOL [Concomitant]
     Active Substance: METAMIZOLE SODIUM
     Route: 065
  12. BELOC ZOK MITE [Concomitant]
     Active Substance: METOPROLOL SUCCINATE
     Route: 065
  13. RAMIPRIL. [Concomitant]
     Active Substance: RAMIPRIL
     Route: 065
  14. DIGITOXIN [Concomitant]
     Active Substance: DIGITOXIN
     Route: 065
  15. CARVEDILOL. [Concomitant]
     Active Substance: CARVEDILOL
     Route: 065
  16. ERYPO [Concomitant]
     Route: 065
  17. SIMULECT [Concomitant]
     Active Substance: BASILIXIMAB
     Indication: IMMUNOSUPPRESSION
     Route: 065
  18. URBASON [Concomitant]
     Active Substance: METHYLPREDNISOLONE
     Route: 065
  19. QUERTO [Concomitant]
     Route: 065
  20. FUROSEMIDE. [Concomitant]
     Active Substance: FUROSEMIDE
     Route: 065
  21. SODIUM BICARBONATE. [Concomitant]
     Active Substance: SODIUM BICARBONATE
     Route: 065
  22. FENTANYL. [Concomitant]
     Active Substance: FENTANYL
     Route: 065
  23. NORADRENALIN [Concomitant]
     Active Substance: NOREPINEPHRINE\NOREPINEPHRINE BITARTRATE
     Route: 065
  24. ACTRAPHANE [Concomitant]
     Active Substance: INSULIN HUMAN
     Route: 065
  25. AMPHOMORONAL [Concomitant]
     Route: 065
  26. MONOIDIN [Concomitant]
     Route: 065
  27. FOSRENOL [Concomitant]
     Active Substance: LANTHANUM CARBONATE
     Route: 065
  28. DEKRISTOL [Concomitant]
     Active Substance: CHOLECALCIFEROL
     Route: 065
  29. NOVAMINSULFON [Concomitant]
     Active Substance: METAMIZOLE
     Route: 065
  30. CISTRACURIUM [Concomitant]
     Route: 065
  31. JONOSTERIL [Concomitant]
     Active Substance: UNSPECIFIED INGREDIENT
     Route: 065
  32. LIQUEMIN [Concomitant]
     Active Substance: HEPARIN SODIUM
     Route: 065
  33. ZOFRAN [Concomitant]
     Active Substance: ONDANSETRON HYDROCHLORIDE
     Route: 065
  34. XOMOLIX [Concomitant]
     Active Substance: DROPERIDOL
     Route: 065
  35. PROGRAF [Concomitant]
     Active Substance: TACROLIMUS\TACROLIMUS ANHYDROUS
     Route: 065
  36. MYFORTIC [Concomitant]
     Active Substance: MYCOPHENOLATE SODIUM
     Route: 065
  37. BAYOTENSIN [Concomitant]
     Route: 065
  38. FRAGMIN [Concomitant]
     Active Substance: DALTEPARIN SODIUM
     Route: 065
  39. FRAXIPARIN [Concomitant]
     Active Substance: NADROPARIN CALCIUM
     Route: 065
  40. MAGNESIUM [Concomitant]
     Active Substance: MAGNESIUM
     Route: 065
  41. SIMVASTATIN. [Concomitant]
     Active Substance: SIMVASTATIN
     Route: 065
  42. COSMOFER [Concomitant]
     Route: 065
  43. PROPOFOL. [Concomitant]
     Active Substance: PROPOFOL
     Route: 065
  44. ZOLPIDEM [Concomitant]
     Active Substance: ZOLPIDEM\ZOLPIDEM TARTRATE
     Route: 065
  45. DORMICUM [Concomitant]
     Active Substance: MIDAZOLAM\MIDAZOLAM HYDROCHLORIDE
     Route: 065
  46. KLISTIER [Concomitant]
     Dosage: FORMULATION: ENEMA
     Route: 065
  47. STAPHYLEX [Concomitant]
     Active Substance: FLUCLOXACILLIN
     Route: 065
  48. COTRIM D.S. [Concomitant]
     Active Substance: SULFAMETHOXAZOLE\TRIMETHOPRIM
     Route: 065
  49. AMLODIPINE [Concomitant]
     Active Substance: AMLODIPINE BESYLATE
     Route: 065
  50. NITRO SPRAY [Concomitant]
     Route: 065
  51. ARANESP [Concomitant]
     Active Substance: DARBEPOETIN ALFA
     Route: 065
  52. RESONIUM [Concomitant]
     Active Substance: SODIUM POLYSTYRENE SULFONATE
     Route: 065
  53. DIPIDOLOR [Concomitant]
     Active Substance: PIRITRAMIDE
     Route: 065
  54. LORAZEPAM. [Concomitant]
     Active Substance: LORAZEPAM
     Route: 065
  55. UNACID [Concomitant]
     Active Substance: AMPICILLIN SODIUM\SULBACTAM SODIUM
     Route: 065
  56. RASILEZ [Concomitant]
     Active Substance: ALISKIREN
     Route: 065
  57. SEVOFLURAN [Concomitant]
     Active Substance: SEVOFLURANE
     Route: 065
  58. CORDRAREX [Concomitant]
     Route: 065

REACTIONS (3)
  - Transplant dysfunction [Recovered/Resolved]
  - Syncope [Recovered/Resolved]
  - Postoperative renal failure [Recovered/Resolved]

NARRATIVE: CASE EVENT DATE: 20120111
